FAERS Safety Report 10275178 (Version 1)
Quarter: 2014Q3

REPORT INFORMATION
  Report Type: Report from Study
  Country: US (occurrence: US)
  Receive Date: 20140703
  Receipt Date: 20140703
  Transmission Date: 20150326
  Serious: Yes (Hospitalization)
  Sender: FDA-Public Use
  Company Number: US-BIOGENIDEC-2014BI063386

PATIENT
  Age: 47 Year
  Sex: Male

DRUGS (2)
  1. AVONEX [Suspect]
     Active Substance: INTERFERON BETA-1A
     Indication: MULTIPLE SCLEROSIS
     Route: 030
     Dates: start: 20090115, end: 20120912
  2. AVONEX [Suspect]
     Active Substance: INTERFERON BETA-1A
     Indication: MULTIPLE SCLEROSIS
     Route: 030

REACTIONS (7)
  - Muscular weakness [Unknown]
  - Coma [Recovered/Resolved]
  - Blood glucose decreased [Unknown]
  - Shock hypoglycaemic [Recovered/Resolved]
  - General symptom [Unknown]
  - Weight gain poor [Unknown]
  - Asthenia [Unknown]

NARRATIVE: CASE EVENT DATE: 2012
